FAERS Safety Report 7023678-5 (Version None)
Quarter: 2010Q3

REPORT INFORMATION
  Report Type: 
  Country: None (occurrence: None)
  Receive Date: 20100929
  Receipt Date: 20100929
  Transmission Date: 20110219
  Serious: Yes (Death)
  Sender: FDA-Public Use
  Company Number: None

PATIENT
  Age: 75 Year
  Sex: Male
  Weight: 56 kg

DRUGS (1)
  1. RITUXIMAB [Suspect]
     Dosage: 619 MG ONCE IV
     Route: 042
     Dates: start: 20100510, end: 20100510

REACTIONS (1)
  - DYSPNOEA [None]
